FAERS Safety Report 5024872-5 (Version None)
Quarter: 2006Q2

REPORT INFORMATION
  Report Type: 
  Country: None (occurrence: None)
  Receive Date: 20060607
  Receipt Date: 20060518
  Transmission Date: 20061013
  Serious: Yes (Hospitalization, Other)
  Sender: FDA-Public Use
  Company Number: HU200604000065

PATIENT
  Sex: Male

DRUGS (5)
  1. HUMULIN N [Suspect]
     Indication: DIABETES MELLITUS
     Dosage: 8, 3/D, SUBCUTANEOUS
     Route: 058
     Dates: start: 19810101
  2. HUMULIN R [Suspect]
     Indication: DIABETES MELLITUS
     Dosage: 8, 3/D, SUBCUTANEOUS
     Route: 058
     Dates: start: 19810101
  3. HUMALOG [Suspect]
     Indication: DIABETES MELLITUS
     Dosage: 8, 3/D, SUBCUTANEOUS
     Route: 058
     Dates: start: 19810101
  4. TRENTAL [Concomitant]
  5. CALCIUM DOBESILATE (CALCIUM DOBESILATE) [Concomitant]

REACTIONS (4)
  - BLOOD GLUCOSE FLUCTUATION [None]
  - COLONIC POLYP [None]
  - DEVICE MALFUNCTION [None]
  - HYPERGLYCAEMIA [None]
